FAERS Safety Report 9697303 (Version 2)
Quarter: 2014Q1

REPORT INFORMATION
  Report Type: Spontaneous
  Country: BR (occurrence: BR)
  Receive Date: 20131120
  Receipt Date: 20140129
  Transmission Date: 20141002
  Serious: Yes (Other)
  Sender: FDA-Public Use
  Company Number: BR-ASTRAZENECA-2013SE84096

PATIENT
  Age: 72 Year
  Sex: Female
  Weight: 52 kg

DRUGS (8)
  1. ATENOLOL [Suspect]
     Indication: HYPERTENSION
     Route: 048
     Dates: start: 201306
  2. BRILINTA [Suspect]
     Indication: MYOCARDIAL INFARCTION
     Route: 048
     Dates: start: 201306, end: 201312
  3. DIAMICRON [Concomitant]
     Indication: DIABETES MELLITUS
     Dates: start: 201306
  4. SIMVASTATIN [Concomitant]
     Indication: BLOOD CHOLESTEROL INCREASED
  5. ASA [Concomitant]
     Indication: ANTICOAGULANT THERAPY
  6. JANUMET [Concomitant]
     Indication: DIABETES MELLITUS
  7. CITALOPRAM [Concomitant]
  8. GLIMEPIRIDE [Concomitant]

REACTIONS (3)
  - Pruritus generalised [Recovered/Resolved]
  - Wound [Recovered/Resolved]
  - Weight decreased [Not Recovered/Not Resolved]
